FAERS Safety Report 23029165 (Version 3)
Quarter: 2023Q4

REPORT INFORMATION
  Report Type: Report from Study
  Country: JP (occurrence: None)
  Receive Date: 20231004
  Receipt Date: 20231019
  Transmission Date: 20240109
  Serious: Yes (Other)
  Sender: FDA-Public Use
  Company Number: 2023A222436

PATIENT
  Age: 64 Year
  Sex: Male

DRUGS (2)
  1. EVUSHELD [Suspect]
     Active Substance: CILGAVIMAB\TIXAGEVIMAB
     Indication: COVID-19 prophylaxis
     Dosage: DOSE UNKNOWN
     Route: 030
  2. OBINUTUZUMAB(GENETICAL RECOMBINATION) [Concomitant]
     Indication: Follicular lymphoma
     Dosage: DOSE UNKNOWN

REACTIONS (1)
  - COVID-19 [Unknown]
